FAERS Safety Report 17147004 (Version 1)
Quarter: 2019Q4

REPORT INFORMATION
  Report Type: Spontaneous
  Country: DE (occurrence: DE)
  Receive Date: 20191212
  Receipt Date: 20191212
  Transmission Date: 20200122
  Serious: Yes (Other)
  Sender: FDA-Public Use
  Company Number: NVSC2019DE061836

PATIENT
  Age: 36 Year
  Sex: Male

DRUGS (2)
  1. LYRICA [Suspect]
     Active Substance: PREGABALIN
     Indication: PRODUCT USED FOR UNKNOWN INDICATION
     Dosage: 150 MG, Q12H (150 MG MORGENS, 150 MG ABENDS)
     Route: 048
     Dates: start: 2017, end: 20190822
  2. RITALIN [Suspect]
     Active Substance: METHYLPHENIDATE HYDROCHLORIDE
     Indication: PRODUCT USED FOR UNKNOWN INDICATION
     Dosage: 100 MG, QD (40 MG MORGENS, 60 MG MITTAGS)
     Route: 048
     Dates: start: 20180204, end: 20190815

REACTIONS (11)
  - Depersonalisation/derealisation disorder [Unknown]
  - Nausea [Unknown]
  - Insomnia [Unknown]
  - Feeling abnormal [Unknown]
  - Tremor [Unknown]
  - Intentional self-injury [Unknown]
  - Decreased appetite [Unknown]
  - Suicidal ideation [Unknown]
  - Depression [Unknown]
  - Hallucinations, mixed [Unknown]
  - Dizziness [Unknown]

NARRATIVE: CASE EVENT DATE: 2019
